FAERS Safety Report 6160332-6 (Version None)
Quarter: 2009Q2

REPORT INFORMATION
  Report Type: 
  Country: None (occurrence: None)
  Receive Date: 20090416
  Receipt Date: 20080107
  Transmission Date: 20091009
  Serious: Yes (Hospitalization)
  Sender: FDA-Public Use
  Company Number: 20096550

PATIENT
  Sex: Female

DRUGS (1)
  1. LIORESAL [Suspect]
     Indication: MUSCLE SPASTICITY
     Dosage: NCG, DAILY, INTRATHECAL
     Route: 037

REACTIONS (3)
  - IMPAIRED HEALING [None]
  - INCISIONAL DRAINAGE [None]
  - WOUND DEHISCENCE [None]
